FAERS Safety Report 5918738-3 (Version None)
Quarter: 2008Q4

REPORT INFORMATION
  Report Type: 
  Country: None (occurrence: None)
  Receive Date: 20081015
  Receipt Date: 20080711
  Transmission Date: 20090506
  Serious: No
  Sender: FDA-Public Use
  Company Number: US-ASTRAZENECA-2008UW13920

PATIENT
  Sex: Female

DRUGS (2)
  1. SYMBICORT [Suspect]
     Dosage: 160/4.5 UG 2 PUFFS TWICE A DAY
     Route: 055
  2. SYMBICORT [Suspect]
     Dosage: REDUCED TO 80/4.5 UG 2 PUFFS TWICE A DAY
     Route: 055

REACTIONS (2)
  - IRRITABILITY [None]
  - MOOD SWINGS [None]
